FAERS Safety Report 20786909 (Version 1)
Quarter: 2022Q2

REPORT INFORMATION
  Report Type: Spontaneous
  Country: US (occurrence: US)
  Receive Date: 20220505
  Receipt Date: 20220505
  Transmission Date: 20220721
  Serious: Yes (Other)
  Sender: FDA-Public Use
  Company Number: US-BRISTOL-MYERS SQUIBB COMPANY-2022-023562

PATIENT
  Age: 79 Year
  Sex: Male
  Weight: 79 kg

DRUGS (18)
  1. REVLIMID [Suspect]
     Active Substance: LENALIDOMIDE
     Indication: Plasma cell myeloma
     Dosage: EVERY DAY
     Route: 048
     Dates: start: 20210420
  2. REVLIMID [Suspect]
     Active Substance: LENALIDOMIDE
     Route: 048
     Dates: start: 20220215, end: 20220325
  3. DECADRON [Concomitant]
     Active Substance: DEXAMETHASONE
     Dosage: FREQUENCY WEEKLY, DI NOTED, INDICATED WITH REVLIMID
     Dates: start: 20210414
  4. VELCADE [Concomitant]
     Active Substance: BORTEZOMIB
     Dates: start: 20210414
  5. ALLOPURINOL [Concomitant]
     Active Substance: ALLOPURINOL
     Dosage: FREQUENCY DAILY
     Route: 048
     Dates: start: 20210414
  6. VALTREX [Concomitant]
     Active Substance: VALACYCLOVIR HYDROCHLORIDE
     Route: 048
  7. HYDROMORPHONE HCL [Concomitant]
     Active Substance: HYDROMORPHONE HYDROCHLORIDE
     Dosage: FREQUENCY AS NEEDED
     Route: 048
     Dates: start: 20210414
  8. PROCHLORPERAZINE MALEATE [Concomitant]
     Active Substance: PROCHLORPERAZINE MALEATE
     Dosage: FREQUENCY AS NEEDED
     Route: 048
     Dates: start: 20210414
  9. OXYCODONE HYDROCHLORIDE [Concomitant]
     Active Substance: OXYCODONE HYDROCHLORIDE
     Dosage: FREQUENCY DAILY
     Route: 048
     Dates: start: 20210414
  10. MIRTAZAPINE [Concomitant]
     Active Substance: MIRTAZAPINE
     Dosage: FREQUENCY DAILY
     Route: 048
     Dates: start: 20210414
  11. ERGOCALCIFEROL [Concomitant]
     Active Substance: ERGOCALCIFEROL
     Dosage: FREQUENCY WEEKLY
     Route: 048
     Dates: start: 20210414
  12. TIZANIDINE HYDROCHLORIDE [Concomitant]
     Active Substance: TIZANIDINE HYDROCHLORIDE
     Dosage: FREQUENCY AS NEEDED
     Route: 048
     Dates: start: 20210414
  13. MOVANTIK [Concomitant]
     Active Substance: NALOXEGOL OXALATE
     Dosage: FREQUENCY AS NEEDED
     Route: 048
     Dates: start: 20210414
  14. NITROGLYCERIN [Concomitant]
     Active Substance: NITROGLYCERIN
     Dosage: FREQUENCY AS NEEDED
     Route: 060
     Dates: start: 20210414
  15. CARVEDILOL [Concomitant]
     Active Substance: CARVEDILOL
     Route: 048
     Dates: start: 20210414
  16. LEVOTHYROXINE SODIUM [Concomitant]
     Active Substance: LEVOTHYROXINE SODIUM
     Dosage: DOSE 88 MCG FREQUENCY DAILY
     Route: 048
     Dates: start: 20210414
  17. KEPPRA [Concomitant]
     Active Substance: LEVETIRACETAM
     Dosage: FREQUENCY DAILY
     Route: 048
  18. GABAPENTIN [Concomitant]
     Active Substance: GABAPENTIN

REACTIONS (1)
  - Neuropathy peripheral [Not Recovered/Not Resolved]

NARRATIVE: CASE EVENT DATE: 20220325
